FAERS Safety Report 14498778 (Version 1)
Quarter: 2018Q1

REPORT INFORMATION
  Report Type: Spontaneous
  Country: US (occurrence: US)
  Receive Date: 20180207
  Receipt Date: 20180207
  Transmission Date: 20180509
  Serious: Yes (Other)
  Sender: FDA-Public Use
  Company Number: US-TEVA-2018-US-854660

PATIENT
  Sex: Female

DRUGS (5)
  1. ULTRAM [Concomitant]
     Active Substance: TRAMADOL HYDROCHLORIDE
  2. REMERON [Concomitant]
     Active Substance: MIRTAZAPINE
  3. CLONAZ [Suspect]
     Active Substance: CLONAZEPAM
     Indication: INSOMNIA
     Dosage: APPROXIMATELY FOUR TO FIVE YEARS AGO
     Dates: start: 2013
  4. CLONAZ [Suspect]
     Active Substance: CLONAZEPAM
     Dates: start: 201707
  5. SYNTHROID [Concomitant]
     Active Substance: LEVOTHYROXINE SODIUM

REACTIONS (4)
  - Migraine [Recovered/Resolved]
  - Post-traumatic stress disorder [Unknown]
  - Suicidal ideation [Unknown]
  - Road traffic accident [Unknown]

NARRATIVE: CASE EVENT DATE: 2013
